FAERS Safety Report 23836297 (Version 3)
Quarter: 2024Q2

REPORT INFORMATION
  Report Type: Spontaneous
  Country: US (occurrence: US)
  Receive Date: 20240509
  Receipt Date: 20240514
  Transmission Date: 20240716
  Serious: No
  Sender: FDA-Public Use
  Company Number: US-PFIZER INC-202400102789

PATIENT
  Age: 71 Year
  Sex: Male
  Weight: 71.67 kg

DRUGS (1)
  1. NICOTROL [Suspect]
     Active Substance: NICOTINE
     Indication: Smoking cessation therapy
     Dosage: INHALE ONE SPRAY IN EACH NOSTRIL
     Route: 045
     Dates: start: 20240503

REACTIONS (3)
  - Device difficult to use [Unknown]
  - Skin laceration [Unknown]
  - Nasal discomfort [Unknown]
